FAERS Safety Report 8159691-4 (Version None)
Quarter: 2012Q1

REPORT INFORMATION
  Report Type: 
  Country: None (occurrence: None)
  Receive Date: 20120223
  Receipt Date: 20120215
  Transmission Date: 20120608
  Serious: Yes (Other)
  Sender: FDA-Public Use
  Company Number: US-BAYER-2011-085191

PATIENT
  Age: 17 Year
  Sex: Female
  Weight: 50.794 kg

DRUGS (4)
  1. YAZ [Suspect]
     Indication: CONTRACEPTION
     Dosage: UNK
     Dates: start: 20080101
  2. LEXAPRO [Concomitant]
  3. EFFEXOR XR [Concomitant]
     Dosage: 37.5 MG, QD
     Route: 048
     Dates: start: 20030108, end: 20031204
  4. YASMIN [Suspect]
     Indication: CONTRACEPTION
     Dosage: UNK
     Dates: start: 20000101, end: 20050101

REACTIONS (12)
  - GALLBLADDER CHOLESTEROLOSIS [None]
  - GALLBLADDER DISORDER [None]
  - CHOLECYSTITIS CHRONIC [None]
  - SCAR [None]
  - SUICIDE ATTEMPT [None]
  - DEPRESSION [None]
  - EMOTIONAL DISTRESS [None]
  - DYSPEPSIA [None]
  - INJURY [None]
  - PAIN [None]
  - MENTAL DISORDER [None]
  - ANXIETY [None]
